FAERS Safety Report 11360978 (Version 1)
Quarter: 2015Q3

REPORT INFORMATION
  Report Type: Spontaneous
  Country: BR (occurrence: BR)
  Receive Date: 20150810
  Receipt Date: 20150810
  Transmission Date: 20151125
  Serious: Yes (Life-Threatening, Hospitalization)
  Sender: FDA-Public Use
  Company Number: BR-PFIZER INC-2015262622

PATIENT
  Age: 54 Year
  Sex: Female
  Weight: 67 kg

DRUGS (3)
  1. HALOPERIDOL DECANOATE. [Concomitant]
     Active Substance: HALOPERIDOL DECANOATE
     Indication: MENTAL DISORDER
     Dosage: 1 AMPOULE, MONTHLY
     Dates: start: 2009
  2. EFFEXOR XR [Suspect]
     Active Substance: VENLAFAXINE HYDROCHLORIDE
     Indication: MENTAL DISORDER
     Dosage: 1 TABLET OF STRENGTH 150 MG, DAILY
     Route: 048
     Dates: start: 2010
  3. FRONTAL [Concomitant]
     Active Substance: ALPRAZOLAM
     Indication: MENTAL DISORDER
     Dosage: 3 TABLETS, DAILY
     Dates: start: 2006

REACTIONS (4)
  - Eating disorder [Unknown]
  - Mood altered [Unknown]
  - Abnormal behaviour [Unknown]
  - Insomnia [Unknown]

NARRATIVE: CASE EVENT DATE: 2012
